FAERS Safety Report 6046161-2 (Version None)
Quarter: 2009Q1

REPORT INFORMATION
  Report Type: 
  Country: None (occurrence: None)
  Receive Date: 20090121
  Receipt Date: 20090121
  Transmission Date: 20090719
  Serious: Yes (Hospitalization)
  Sender: FDA-Public Use
  Company Number: None

PATIENT
  Age: 47 Year
  Sex: Male
  Weight: 6903 kg

DRUGS (2)
  1. PROCHLORPERAZINE [Suspect]
     Indication: NAUSEA
     Dosage: 5 MG OTHER IM
     Route: 030
     Dates: start: 20090117, end: 20090117
  2. PROCHLORPERAZINE [Suspect]
     Indication: VOMITING
     Dosage: 5 MG OTHER IM
     Route: 030
     Dates: start: 20090117, end: 20090117

REACTIONS (1)
  - CONVULSION [None]
